FAERS Safety Report 8911504 (Version 1)
Quarter: 2012Q4

REPORT INFORMATION
  Report Type: 
  Country: US (occurrence: US)
  Receive Date: 20121115
  Receipt Date: 20121115
  Transmission Date: 20130627
  Serious: No
  Sender: FDA-Public Use
  Company Number: US-PFIZER INC-2012284547

PATIENT
  Age: 39 Year
  Sex: Female
  Weight: 72.56 kg

DRUGS (5)
  1. CHANTIX [Suspect]
     Indication: SMOKING CESSATION THERAPY
     Dosage: 0.5 mg, daily
     Route: 048
     Dates: start: 20121023
  2. CHANTIX [Suspect]
     Dosage: 0.5 mg, 2x/day
     Route: 048
  3. CHANTIX [Suspect]
     Dosage: 1 mg, 2x/day
     Route: 048
  4. LEVOTHYROXINE [Concomitant]
     Indication: GRAVES^ DISEASE
     Dosage: 150 ug, daily
     Dates: start: 200607
  5. LOSARTAN [Concomitant]
     Indication: HYPERTENSION
     Dosage: 100 mg, daily

REACTIONS (3)
  - Vision blurred [Not Recovered/Not Resolved]
  - Insomnia [Unknown]
  - Abnormal dreams [Not Recovered/Not Resolved]
